FAERS Safety Report 23982968 (Version 1)
Quarter: 2024Q2

REPORT INFORMATION
  Report Type: Spontaneous
  Country: CH (occurrence: CH)
  Receive Date: 20240617
  Receipt Date: 20240617
  Transmission Date: 20240716
  Serious: Yes (Other)
  Sender: FDA-Public Use
  Company Number: CH-PAIPHARMA-2024-CH-000017

PATIENT
  Age: 67 Year
  Sex: Male

DRUGS (1)
  1. AMANTADINE [Suspect]
     Active Substance: AMANTADINE
     Indication: Parkinsonian gait
     Dosage: 100 MG DAILY; 200 MG DAILY; 100 MG DAILY

REACTIONS (1)
  - Opsoclonus [Unknown]
